FAERS Safety Report 19532589 (Version 1)
Quarter: 2021Q3

REPORT INFORMATION
  Report Type: Spontaneous
  Country: US (occurrence: US)
  Receive Date: 20210713
  Receipt Date: 20210713
  Transmission Date: 20211014
  Serious: Yes (Other)
  Sender: FDA-Public Use
  Company Number: US-SYNEX-T202103038

PATIENT
  Age: 61 Year
  Sex: Male

DRUGS (3)
  1. INOMAX [Suspect]
     Active Substance: NITRIC OXIDE
     Indication: COVID-19
     Dosage: UNK (INHALATION)
     Route: 055
  2. REMDESIVIR. [Concomitant]
     Active Substance: REMDESIVIR
     Indication: COVID-19
     Dosage: UNK
     Route: 065
  3. INTERLEUKIN?6 [Concomitant]
     Active Substance: INTERLEUKIN NOS
     Indication: COVID-19
     Dosage: UNK
     Route: 065

REACTIONS (3)
  - Pneumomediastinum [Unknown]
  - Product use issue [Unknown]
  - Product use in unapproved indication [Unknown]
